FAERS Safety Report 7359196-4 (Version None)
Quarter: 2011Q1

REPORT INFORMATION
  Report Type: 
  Country: None (occurrence: None)
  Receive Date: 20110317
  Receipt Date: 20110311
  Transmission Date: 20110831
  Serious: Yes (Other)
  Sender: FDA-Public Use
  Company Number: CH-ELI_LILLY_AND_COMPANY-CH201102006739

PATIENT
  Sex: Male
  Weight: 113 kg

DRUGS (5)
  1. CIBACEN [Concomitant]
     Indication: HYPERTENSION
     Dosage: 10 MG, DAILY (1/D)
     Route: 048
  2. CALCIMAGON-D3 [Concomitant]
     Indication: OSTEOPOROSIS
     Dosage: UNK, DAILY (1/D)
     Route: 048
  3. FORTEO [Suspect]
     Indication: OSTEOPOROSIS
     Dosage: 20 UG, DAILY (1/D)
     Route: 058
     Dates: start: 20100401, end: 20110218
  4. PREDNISOLONE [Concomitant]
     Indication: EOSINOPHILIA
     Dosage: 20 MG, DAILY (1/D)
     Route: 048
  5. PANTOPRAZOL [Concomitant]
     Indication: GASTRITIS
     Dosage: 40 MG, DAILY (1/D)
     Route: 048

REACTIONS (3)
  - INTERSTITIAL LUNG DISEASE [None]
  - LYMPHOPROLIFERATIVE DISORDER [None]
  - EPSTEIN-BARR VIRUS ASSOCIATED LYMPHOPROLIFERATIVE DISORDER [None]
